FAERS Safety Report 20106076 (Version 6)
Quarter: 2022Q2

REPORT INFORMATION
  Report Type: Report from Study
  Country: US (occurrence: US)
  Receive Date: 20211124
  Receipt Date: 20220421
  Transmission Date: 20220720
  Serious: No
  Sender: FDA-Public Use
  Company Number: US-NOVARTISTESTPH-NVSC2021US267908

PATIENT
  Sex: Female

DRUGS (2)
  1. COSENTYX [Suspect]
     Active Substance: SECUKINUMAB
     Indication: Psoriasis
     Dosage: 300 MG (LOADING DOSE)
     Route: 065
     Dates: start: 202110
  2. COSENTYX [Suspect]
     Active Substance: SECUKINUMAB
     Dosage: 300 MG (MAINTENANCE DOSE)
     Route: 065

REACTIONS (5)
  - Skin lesion [Unknown]
  - Ingrown hair [Recovered/Resolved]
  - Infection [Recovered/Resolved]
  - Injection site bruising [Recovered/Resolved]
  - Subcutaneous abscess [Not Recovered/Not Resolved]
